FAERS Safety Report 13656856 (Version 4)
Quarter: 2017Q4

REPORT INFORMATION
  Report Type: Report from Study
  Country: US (occurrence: US)
  Receive Date: 20170615
  Receipt Date: 20171020
  Transmission Date: 20180320
  Serious: Yes (Death, Hospitalization, Other)
  Sender: FDA-Public Use
  Company Number: US-ACTELION-A-US2016-141308

PATIENT
  Age: 70 Year
  Sex: Female
  Weight: 66.67 kg

DRUGS (9)
  1. UPTRAVI [Suspect]
     Active Substance: SELEXIPAG
     Dosage: 1200 MCG AM / 1000 MCG PM
     Route: 048
  2. UPTRAVI [Suspect]
     Active Substance: SELEXIPAG
     Dosage: 1000 MCG, BID
     Route: 048
  3. UPTRAVI [Suspect]
     Active Substance: SELEXIPAG
     Dosage: 200 MCG, QD
     Route: 048
  4. NIFEDIPINE. [Concomitant]
     Active Substance: NIFEDIPINE
  5. UPTRAVI [Suspect]
     Active Substance: SELEXIPAG
     Indication: PULMONARY HYPERTENSION
     Dosage: 400 MCG, BID
     Route: 048
  6. DILTIAZEM. [Concomitant]
     Active Substance: DILTIAZEM
  7. UPTRAVI [Suspect]
     Active Substance: SELEXIPAG
     Dosage: 200 MCG, BID
     Route: 048
     Dates: start: 20160802
  8. UPTRAVI [Suspect]
     Active Substance: SELEXIPAG
     Dosage: 800 MCG AM / 1000 MCG PM
     Route: 048
  9. RIOCIGUAT [Concomitant]
     Active Substance: RIOCIGUAT

REACTIONS (11)
  - Hypotension [Unknown]
  - Fall [Unknown]
  - Pain [Unknown]
  - Dyspnoea [Unknown]
  - Lung disorder [Fatal]
  - Abdominal pain upper [Unknown]
  - Therapy non-responder [Unknown]
  - Spinal column injury [Unknown]
  - Malaise [Unknown]
  - Chest pain [Unknown]
  - Dizziness [Unknown]

NARRATIVE: CASE EVENT DATE: 20161213
